FAERS Safety Report 15269675 (Version 1)
Quarter: 2018Q3

REPORT INFORMATION
  Report Type: Spontaneous
  Country: US (occurrence: US)
  Receive Date: 20180726
  Receipt Date: 20180726
  Transmission Date: 20181010
  Serious: Yes (Life-Threatening, Hospitalization, Disabling, Other)
  Sender: FDA-Public Use
  Company Number: None

PATIENT
  Age: 53 Year
  Sex: Female
  Weight: 65.25 kg

DRUGS (3)
  1. APRAZOLAM GENERIC FOR XANAX [Suspect]
     Active Substance: ALPRAZOLAM
     Indication: ANXIETY
     Route: 048
  2. GABAPENTIN. [Concomitant]
     Active Substance: GABAPENTIN
  3. LORAZEPAM GENERIC FOR ATIVAN, 0.5 MG ACTAVIS [Suspect]
     Active Substance: LORAZEPAM
     Indication: ANXIETY
     Route: 048

REACTIONS (11)
  - Cognitive disorder [None]
  - Asthenia [None]
  - Suicidal ideation [None]
  - Decreased appetite [None]
  - Pain [None]
  - Feeling of despair [None]
  - Panic attack [None]
  - Psychotic disorder [None]
  - Loss of personal independence in daily activities [None]
  - Mental disorder [None]
  - Insomnia [None]
